FAERS Safety Report 10575358 (Version 2)
Quarter: 2014Q4

REPORT INFORMATION
  Report Type: Report from Study
  Country: GB (occurrence: None)
  Receive Date: 20141107
  Receipt Date: 20141117
  Transmission Date: 20150529
  Serious: Yes (Hospitalization)
  Sender: FDA-Public Use
  Company Number: 2014GB0467

PATIENT
  Age: 36 Year
  Sex: Male

DRUGS (34)
  1. ALLOPURINOL. [Concomitant]
     Active Substance: ALLOPURINOL
  2. ACICLOVIR [Concomitant]
     Active Substance: ACYCLOVIR
  3. PARACETAMOL [Concomitant]
     Active Substance: ACETAMINOPHEN
  4. ESOMEPRAZOLE [Concomitant]
     Active Substance: ESOMEPRAZOLE
  5. CYCLOSPORIN [Concomitant]
     Active Substance: CYCLOSPORINE
  6. MAGNESIUM OXIDE. [Concomitant]
     Active Substance: MAGNESIUM OXIDE
  7. KEPIVANCE [Suspect]
     Active Substance: PALIFERMIN
     Indication: STOMATITIS
     Route: 042
     Dates: start: 20140802, end: 20140816
  8. DEXAMETHASONE. [Concomitant]
     Active Substance: DEXAMETHASONE
  9. LEVEMIR [Concomitant]
     Active Substance: INSULIN DETEMIR
  10. ITRACONZAOLE [Concomitant]
  11. AMLODIPINE [Concomitant]
     Active Substance: AMLODIPINE BESYLATE
  12. CHLORHEXIDINE (CHLORHEXIDINE) (MOUTH WASH) (CHLORHEXIDINE) [Concomitant]
  13. ONDANSETRON [Concomitant]
     Active Substance: ONDANSETRON
  14. BENZOCAINE (BENZOCAINE) (MOUTH WASH) (BENZOCAINE) [Concomitant]
  15. FOLINIC ACID [Concomitant]
     Active Substance: LEUCOVORIN
  16. ORAMORPH (MORPHINE SULFATE PENTAHYDRATE) [Concomitant]
  17. TEICOPLANIN [Concomitant]
     Active Substance: TEICOPLANIN
  18. NYSTATIN (NYSTATIN) )(MOUTH WASH) (NYSTATIN) [Concomitant]
  19. INSUMAN COMB (HUMAN MIXTARD) (INSULIN HUMAN, INSULIN HUMAN INJECTION, ISOPHANE) [Concomitant]
  20. AMILORIDE [Concomitant]
     Active Substance: AMILORIDE
  21. ETOPOSIDE. [Concomitant]
     Active Substance: ETOPOSIDE
  22. IMATINIB [Concomitant]
     Active Substance: IMATINIB
  23. BENZYDAMINE [Concomitant]
     Active Substance: BENZYDAMINE
  24. POSACONAZOLE [Concomitant]
     Active Substance: POSACONAZOLE
  25. PABRINEX (PARENTROVITE PYRIDOXINE HYDROCHLORIDE, THIAMINE HYDROCHLORIDE, RIBOFLAVIN, NICOTINAMIDE) [Concomitant]
  26. OMEPRAZOLE. [Concomitant]
     Active Substance: OMEPRAZOLE
  27. ENOXAPARIN [Concomitant]
     Active Substance: ENOXAPARIN
  28. CIPROFLOXACIN. [Concomitant]
     Active Substance: CIPROFLOXACIN
  29. MEROPENEM. [Concomitant]
     Active Substance: MEROPENEM
  30. LORAZEPAM. [Concomitant]
     Active Substance: LORAZEPAM
  31. PENICILLIN V (PHENOXYMETHYLPENICILLIN) [Concomitant]
  32. METOCLOPRAMIDE. [Concomitant]
     Active Substance: METOCLOPRAMIDE
  33. TAZOCIN (PIP/TAZO) (PIPERACILLIN SODIUM, TAZOBACTAM SODIUM) [Concomitant]
  34. METHOTREXATE [Concomitant]
     Active Substance: METHOTREXATE

REACTIONS (4)
  - Diarrhoea [None]
  - Graft versus host disease in gastrointestinal tract [None]
  - Pyrexia [None]
  - Acute kidney injury [None]

NARRATIVE: CASE EVENT DATE: 20140901
